FAERS Safety Report 18384664 (Version 1)
Quarter: 2020Q4

REPORT INFORMATION
  Report Type: Report from Study
  Country: MX (occurrence: MX)
  Receive Date: 20201015
  Receipt Date: 20201015
  Transmission Date: 20210114
  Serious: Yes (Other)
  Sender: FDA-Public Use
  Company Number: PHHY2019MX019621

PATIENT
  Age: 45 Year
  Sex: Male

DRUGS (1)
  1. CO-DIOVAN [Suspect]
     Active Substance: HYDROCHLOROTHIAZIDE\VALSARTAN
     Indication: HYPERTENSION
     Dosage: HYDROCHLOROTHIAZIDE 12.5 MG, VALSARTAN 320 MG
     Route: 048

REACTIONS (4)
  - Gastroenteritis [Recovering/Resolving]
  - Feeling abnormal [Recovering/Resolving]
  - Gastrointestinal infection [Unknown]
  - Infection parasitic [Recovering/Resolving]

NARRATIVE: CASE EVENT DATE: 20190108
